FAERS Safety Report 25522627 (Version 1)
Quarter: 2025Q3

REPORT INFORMATION
  Report Type: Spontaneous
  Country: US (occurrence: US)
  Receive Date: 20250707
  Receipt Date: 20250707
  Transmission Date: 20251021
  Serious: No
  Sender: BAUSCH AND LOMB
  Company Number: US-BAUSCHBL-2025BNL011608

PATIENT
  Sex: Female

DRUGS (4)
  1. MIEBO [Suspect]
     Active Substance: PERFLUOROHEXYLOCTANE
     Indication: Dry eye
     Route: 047
  2. CEQUA [Concomitant]
     Active Substance: CYCLOSPORINE
     Indication: Dry eye
  3. EYSUVIS [Concomitant]
     Active Substance: LOTEPREDNOL ETABONATE
     Indication: Dry eye
  4. GENTILE [Concomitant]
     Indication: Dry eye

REACTIONS (1)
  - Drug ineffective [Unknown]
